FAERS Safety Report 6259025-6 (Version None)
Quarter: 2009Q3

REPORT INFORMATION
  Report Type: 
  Country: None (occurrence: None)
  Receive Date: 20090707
  Receipt Date: 20090629
  Transmission Date: 20100115
  Serious: Yes (Other)
  Sender: FDA-Public Use
  Company Number: PHHY2009JP07029

PATIENT
  Sex: Male

DRUGS (11)
  1. ZOMETA [Suspect]
     Indication: METASTASES TO BONE
     Dosage: UNK
     Route: 042
     Dates: start: 20080314, end: 20081205
  2. TAXOTERE [Concomitant]
     Indication: PROSTATE CANCER
     Dosage: 120MG
     Route: 042
     Dates: start: 20081125
  3. TAXOTERE [Concomitant]
     Dosage: 100MG
     Route: 042
  4. LEUPLIN [Concomitant]
     Indication: PROSTATE CANCER
     Route: 058
  5. DECADRON [Concomitant]
  6. KYTRIL [Concomitant]
  7. LASIX [Concomitant]
  8. LOXONIN [Concomitant]
  9. MUCOSTA [Concomitant]
  10. URSO 250 [Concomitant]
  11. FAMOTIDINE [Concomitant]

REACTIONS (6)
  - METASTASES TO BONE [None]
  - OSTEOMYELITIS [None]
  - PAIN IN JAW [None]
  - PURULENT DISCHARGE [None]
  - SEQUESTRECTOMY [None]
  - TOOTH EXTRACTION [None]
